FAERS Safety Report 7279021-X (Version None)
Quarter: 2011Q1

REPORT INFORMATION
  Report Type: 
  Country: None (occurrence: None)
  Receive Date: 20110207
  Receipt Date: 20110127
  Transmission Date: 20110831
  Serious: Yes (Other)
  Sender: FDA-Public Use
  Company Number: PHFR2010GB05628

PATIENT
  Sex: Female
  Weight: 108 kg

DRUGS (13)
  1. PLAVIX [Concomitant]
     Dosage: 75 MG, QD
  2. MIRTAZAPINE [Concomitant]
     Dosage: 45 MG, QD
  3. IPRATROPIUM BROMIDE [Concomitant]
  4. HUMIRA [Concomitant]
     Dosage: 1 DF/FORTNIGHTLY
  5. ISOSORBIDE MONONITRATE [Concomitant]
     Dosage: 60 MG, QD
  6. ZOLEDRONATE [Suspect]
     Indication: OSTEOPOROSIS
     Dosage: 5 MG
     Dates: start: 20100602
  7. VENTOLIN [Concomitant]
  8. METHOTREXAT [Concomitant]
     Dosage: 2.5 MG, QW
     Route: 048
  9. DIHYDROCODEINE BITARTRATE INJ [Concomitant]
  10. SIMVASTATIN [Concomitant]
     Dosage: 40 MG, QD
  11. LANSOPRAZOLE [Concomitant]
     Dosage: 30 MG, QD
  12. FUROSEMIDE [Concomitant]
     Dosage: 40 MG, QD
     Route: 048
  13. FOLATE SODIUM [Concomitant]
     Dosage: 5 MG, QD

REACTIONS (1)
  - HAEMATURIA [None]
